FAERS Safety Report 10099018 (Version 2)
Quarter: 2014Q2

REPORT INFORMATION
  Report Type: Spontaneous
  Country: IT (occurrence: IT)
  Receive Date: 20140423
  Receipt Date: 20140428
  Transmission Date: 20141212
  Serious: Yes (Other)
  Sender: FDA-Public Use
  Company Number: IT-PFIZER INC-2014109142

PATIENT
  Age: 5 Year
  Sex: Male

DRUGS (1)
  1. TRIAZOLAM [Suspect]
     Dosage: 250 UG, SINGLE
     Route: 048
     Dates: start: 20140306, end: 20140306

REACTIONS (4)
  - Accidental exposure to product by child [Recovered/Resolved]
  - Aspartate aminotransferase increased [Recovered/Resolved]
  - Diplopia [Recovered/Resolved]
  - Gait disturbance [Recovered/Resolved]
